FAERS Safety Report 6005659-3 (Version None)
Quarter: 2008Q4

REPORT INFORMATION
  Report Type: 
  Country: None (occurrence: None)
  Receive Date: 20081217
  Receipt Date: 20081117
  Transmission Date: 20090506
  Serious: Yes (Disabling)
  Sender: FDA-Public Use
  Company Number: NL-JNJFOC-20081104736

PATIENT
  Sex: Female
  Weight: 48 kg

DRUGS (10)
  1. PANCREASE [Suspect]
     Indication: DRUG USE FOR UNKNOWN INDICATION
     Route: 048
  2. IPRATROPIUM BROMIDE [Concomitant]
     Route: 048
  3. SYMBICORT [Concomitant]
     Route: 055
  4. PAROXETINE HCL [Concomitant]
     Route: 048
  5. IMOVANE [Concomitant]
     Route: 048
  6. LIVIAL [Concomitant]
     Route: 048
  7. PANTOZOL [Concomitant]
     Route: 048
  8. ZYBAN [Concomitant]
     Route: 048
  9. CETIRIZINE HCL [Concomitant]
     Route: 048
  10. PANZYTRAT [Concomitant]

REACTIONS (3)
  - DIARRHOEA [None]
  - GAIT DISTURBANCE [None]
  - WEIGHT DECREASED [None]
